FAERS Safety Report 9846158 (Version 2)
Quarter: 2014Q1

REPORT INFORMATION
  Report Type: Spontaneous
  Country: US (occurrence: US)
  Receive Date: 20140127
  Receipt Date: 20140325
  Transmission Date: 20141002
  Serious: Yes (Other)
  Sender: FDA-Public Use
  Company Number: US-JNJFOC-20140101533

PATIENT
  Sex: Male
  Weight: 78.93 kg

DRUGS (5)
  1. XARELTO [Suspect]
     Indication: THROMBOSIS
     Route: 048
     Dates: start: 2013
  2. PERCOCET [Concomitant]
     Indication: BACK PAIN
     Dosage: HALF TABLET 10/325 MG
     Route: 048
     Dates: start: 2009
  3. HYTRIN [Concomitant]
     Indication: URINARY TRACT DISORDER
     Route: 048
  4. QUININE [Concomitant]
     Indication: MUSCLE SPASMS
     Route: 048
  5. LIPITOR [Concomitant]
     Route: 048

REACTIONS (8)
  - Thrombosis [Not Recovered/Not Resolved]
  - Vision blurred [Not Recovered/Not Resolved]
  - Hypoaesthesia [Not Recovered/Not Resolved]
  - Pain in extremity [Not Recovered/Not Resolved]
  - Muscle spasms [Not Recovered/Not Resolved]
  - Back pain [Not Recovered/Not Resolved]
  - Incorrect dose administered [Not Recovered/Not Resolved]
  - Rash macular [Not Recovered/Not Resolved]
